FAERS Safety Report 11009123 (Version 1)
Quarter: 2015Q2

REPORT INFORMATION
  Report Type: Spontaneous
  Country: US (occurrence: None)
  Receive Date: 20150409
  Receipt Date: 20150409
  Transmission Date: 20150821
  Serious: Yes (Hospitalization, Other)
  Sender: FDA-Public Use
  Company Number: None

PATIENT
  Age: 52 Year
  Sex: Female
  Weight: 61.69 kg

DRUGS (5)
  1. TITANIUM. [Concomitant]
     Active Substance: TITANIUM
  2. MOBIC [Concomitant]
     Active Substance: MELOXICAM
  3. TRAMADOL [Concomitant]
     Active Substance: TRAMADOL
  4. TRAMADOL [Suspect]
     Active Substance: TRAMADOL
     Indication: BACK PAIN
     Dosage: TAKEN BY MOUTH
     Route: 048
  5. KEPPRA [Concomitant]
     Active Substance: LEVETIRACETAM

REACTIONS (5)
  - Seizure [None]
  - Injury [None]
  - Humerus fracture [None]
  - Memory impairment [None]
  - Hypoaesthesia [None]
